FAERS Safety Report 18229014 (Version 1)
Quarter: 2020Q3

REPORT INFORMATION
  Report Type: Spontaneous
  Country: AU (occurrence: AU)
  Receive Date: 20200903
  Receipt Date: 20200903
  Transmission Date: 20201103
  Serious: Yes (Other)
  Sender: FDA-Public Use
  Company Number: AU-BAYER-2020-182984

PATIENT
  Age: 71 Year
  Sex: Male

DRUGS (1)
  1. GADOVIST [Suspect]
     Active Substance: GADOBUTROL
     Indication: MAGNETIC RESONANCE IMAGING
     Dosage: UNK, ONCE
     Dates: start: 20200827, end: 20200827

REACTIONS (3)
  - Fatigue [None]
  - Cold sweat [None]
  - Pallor [None]

NARRATIVE: CASE EVENT DATE: 20200827
